FAERS Safety Report 6274252-X (Version None)
Quarter: 2009Q3

REPORT INFORMATION
  Report Type: 
  Country: None (occurrence: None)
  Receive Date: 20090720
  Receipt Date: 20090529
  Transmission Date: 20100115
  Serious: Yes (Hospitalization)
  Sender: FDA-Public Use
  Company Number: US-JNJFOC-20090702038

PATIENT
  Age: 14 Year
  Sex: Male

DRUGS (6)
  1. ITRACONAZOLE [Suspect]
     Route: 065
  2. ITRACONAZOLE [Suspect]
     Indication: HISTOPLASMOSIS
     Route: 065
  3. VINBLASTINE [Interacting]
     Indication: HODGKIN'S DISEASE
     Route: 065
  4. DOXORUBICIN HCL [Interacting]
     Indication: HODGKIN'S DISEASE
     Route: 065
  5. METHOTREXATE [Interacting]
     Indication: HODGKIN'S DISEASE
     Route: 065
  6. PREDNISONE TAB [Interacting]
     Indication: HODGKIN'S DISEASE
     Route: 065

REACTIONS (8)
  - ABDOMINAL PAIN [None]
  - DRUG INTERACTION [None]
  - FEEDING DISORDER [None]
  - MUCOSAL INFLAMMATION [None]
  - NEURALGIA [None]
  - NEUTROPENIA [None]
  - PARAESTHESIA [None]
  - RELAPSING FEVER [None]
